FAERS Safety Report 20609596 (Version 1)
Quarter: 2022Q1

REPORT INFORMATION
  Report Type: Spontaneous
  Country: CA (occurrence: CA)
  Receive Date: 20220318
  Receipt Date: 20220318
  Transmission Date: 20220423
  Serious: Yes (Other)
  Sender: FDA-Public Use
  Company Number: CA-AUROBINDO-AUR-APL-2022-008284

PATIENT
  Age: 37 Year
  Sex: Male
  Weight: 83.9 kg

DRUGS (2)
  1. CIPROFLOXACIN [Suspect]
     Active Substance: CIPROFLOXACIN
     Indication: Infection prophylaxis
     Dosage: 500 MILLIGRAM, TWO TIMES A DAY(2 EVERY 1 DAYS)
     Route: 048
  2. CIPROFLOXACIN [Suspect]
     Active Substance: CIPROFLOXACIN
     Indication: Cystoscopy

REACTIONS (6)
  - Abdominal pain upper [Unknown]
  - Back pain [Unknown]
  - Insomnia [Unknown]
  - Muscular weakness [Unknown]
  - Myalgia [Unknown]
  - Paraesthesia [Unknown]
